FAERS Safety Report 11243768 (Version 1)
Quarter: 2015Q3

REPORT INFORMATION
  Report Type: Spontaneous
  Country: US (occurrence: US)
  Receive Date: 20150707
  Receipt Date: 20150707
  Transmission Date: 20151125
  Serious: Yes (Other)
  Sender: FDA-Public Use
  Company Number: US-ASTRAZENECA-2015SE64754

PATIENT
  Age: 928 Month
  Sex: Female
  Weight: 52.6 kg

DRUGS (3)
  1. VENTOLIN [Concomitant]
     Active Substance: ALBUTEROL SULFATE
     Indication: ASTHMA
     Dosage: 2 PUFFS TWICE A DAY AS NEEDED
     Route: 055
  2. SYMBICORT [Suspect]
     Active Substance: BUDESONIDE\FORMOTEROL FUMARATE DIHYDRATE
     Indication: ASTHMA
     Dosage: 160/45 TWO PUFFS, TWO TIMES A DAY
     Route: 055
     Dates: start: 200807
  3. ATROVENT [Concomitant]
     Active Substance: IPRATROPIUM BROMIDE
     Indication: ASTHMA
     Dosage: 2 PUFFS TWICE A DAY AS NEEDED
     Route: 055

REACTIONS (4)
  - Lung neoplasm malignant [Unknown]
  - Rheumatoid arthritis [Unknown]
  - Body height decreased [Unknown]
  - Circumstance or information capable of leading to medication error [Unknown]

NARRATIVE: CASE EVENT DATE: 201110
